FAERS Safety Report 7884574-4 (Version None)
Quarter: 2011Q4

REPORT INFORMATION
  Report Type: 
  Country: None (occurrence: None)
  Receive Date: 20111102
  Receipt Date: 20111025
  Transmission Date: 20120403
  Serious: Yes (Other)
  Sender: FDA-Public Use
  Company Number: GB-B.I. PHARMACEUTICALS,INC./RIDGEFIELD-2011-UK-01162UK

PATIENT

DRUGS (1)
  1. PRADAXA [Suspect]
     Dosage: 40 TABLETS

REACTIONS (2)
  - PULMONARY HYPERTENSION [None]
  - OVERDOSE [None]
